FAERS Safety Report 4898294-1 (Version None)
Quarter: 2006Q1

REPORT INFORMATION
  Report Type: 
  Country: None (occurrence: None)
  Receive Date: 20060127
  Receipt Date: 20060113
  Transmission Date: 20060701
  Serious: Yes (Hospitalization)
  Sender: FDA-Public Use
  Company Number: USA0510111024

PATIENT
  Sex: Female

DRUGS (1)
  1. CYMBALTA [Suspect]
     Dosage: 30 MG, ORAL
     Route: 048

REACTIONS (3)
  - FALL [None]
  - LOWER LIMB FRACTURE [None]
  - ORTHOSTATIC HYPOTENSION [None]
